FAERS Safety Report 10021987 (Version 2)
Quarter: 2014Q1

REPORT INFORMATION
  Report Type: Spontaneous
  Country: US (occurrence: US)
  Receive Date: 20140319
  Receipt Date: 20140321
  Transmission Date: 20141002
  Serious: No
  Sender: FDA-Public Use
  Company Number: US-VERTEX PHARMACEUTICALS INC-2014-001235

PATIENT
  Age: 52 Year
  Sex: Female
  Weight: 86 kg

DRUGS (8)
  1. INCIVEK [Suspect]
     Indication: HEPATITIS C
     Dosage: 750 MG, TID
     Route: 048
     Dates: start: 20140310
  2. RIBAVIRIN [Suspect]
     Indication: HEPATITIS C
     Dosage: 3 DF, BID
     Route: 048
     Dates: start: 20140310
  3. PEGASYS [Suspect]
     Indication: HEPATITIS C
     Dosage: 150 ?G, QW
     Route: 058
     Dates: start: 20140310
  4. LORTAB [Concomitant]
     Indication: PAIN
     Route: 048
  5. FENTANYL [Concomitant]
     Indication: PAIN
     Route: 061
  6. NUVIGIL [Concomitant]
     Indication: ASTHENIA
     Route: 048
  7. BP MEDICINE [Concomitant]
     Indication: HYPERTENSION
     Route: 048
  8. VITAMIN B [Concomitant]
     Indication: NUTRITIONAL SUPPLEMENTATION
     Dosage: 1000 MG, QD
     Route: 048

REACTIONS (3)
  - Influenza like illness [Not Recovered/Not Resolved]
  - Weight decreased [Not Recovered/Not Resolved]
  - Vomiting [Unknown]
